FAERS Safety Report 12311388 (Version 1)
Quarter: 2016Q2

REPORT INFORMATION
  Report Type: Spontaneous
  Country: US (occurrence: US)
  Receive Date: 20160427
  Receipt Date: 20160427
  Transmission Date: 20160815
  Serious: Yes (Other)
  Sender: FDA-Public Use
  Company Number: PHEH2016US009434

PATIENT
  Sex: Female

DRUGS (15)
  1. TEGRETOL [Suspect]
     Active Substance: CARBAMAZEPINE
     Indication: GENERALISED TONIC-CLONIC SEIZURE
  2. TEGRETOL [Suspect]
     Active Substance: CARBAMAZEPINE
     Indication: EPILEPSY
  3. TOPAMAX [Suspect]
     Active Substance: TOPIRAMATE
     Indication: GENERALISED TONIC-CLONIC SEIZURE
  4. TOPAMAX [Suspect]
     Active Substance: TOPIRAMATE
     Indication: EPILEPSY
  5. DEPAKOTE [Suspect]
     Active Substance: DIVALPROEX SODIUM
     Indication: COMPLEX PARTIAL SEIZURES
     Route: 065
  6. DEPAKOTE [Suspect]
     Active Substance: DIVALPROEX SODIUM
     Indication: EPILEPSY
  7. ZONEGRAN [Suspect]
     Active Substance: ZONISAMIDE
     Indication: EPILEPSY
  8. TEGRETOL [Suspect]
     Active Substance: CARBAMAZEPINE
     Indication: COMPLEX PARTIAL SEIZURES
     Dosage: UNK
     Route: 065
  9. ZONEGRAN [Suspect]
     Active Substance: ZONISAMIDE
     Indication: GENERALISED TONIC-CLONIC SEIZURE
  10. KEPPRA [Suspect]
     Active Substance: LEVETIRACETAM
     Indication: EPILEPSY
     Dosage: 3000 MG, QD
     Route: 065
  11. DEPAKOTE [Suspect]
     Active Substance: DIVALPROEX SODIUM
     Indication: GENERALISED TONIC-CLONIC SEIZURE
  12. KEPPRA [Suspect]
     Active Substance: LEVETIRACETAM
     Indication: GENERALISED TONIC-CLONIC SEIZURE
     Dosage: UNK, BELOW 3000MG PER DAY
     Route: 065
  13. TOPAMAX [Suspect]
     Active Substance: TOPIRAMATE
     Indication: COMPLEX PARTIAL SEIZURES
     Route: 065
  14. KEPPRA [Suspect]
     Active Substance: LEVETIRACETAM
     Indication: COMPLEX PARTIAL SEIZURES
     Dosage: 2 DF, BID (750MG CONCENTRATION)
     Route: 065
  15. ZONEGRAN [Suspect]
     Active Substance: ZONISAMIDE
     Indication: COMPLEX PARTIAL SEIZURES
     Dosage: UNK
     Route: 065

REACTIONS (2)
  - Seizure [Recovered/Resolved]
  - Drug ineffective [Recovered/Resolved]
